FAERS Safety Report 9870126 (Version 1)
Quarter: 2014Q1

REPORT INFORMATION
  Report Type: Report from Study
  Country: US (occurrence: US)
  Receive Date: 20140205
  Receipt Date: 20140205
  Transmission Date: 20141002
  Serious: Yes (Other)
  Sender: FDA-Public Use
  Company Number: US-US-EMD SERONO, INC.-7266126

PATIENT
  Age: 7 Year
  Sex: Female

DRUGS (1)
  1. SAIZEN [(SOMATROPIN (RDNA ORIGIN) FOR INJECTION)] [Suspect]
     Indication: GROWTH RETARDATION
     Dates: start: 20130830

REACTIONS (2)
  - Deafness unilateral [Unknown]
  - Injection site pain [Not Recovered/Not Resolved]
